FAERS Safety Report 10098930 (Version 1)
Quarter: 2014Q2

REPORT INFORMATION
  Report Type: Spontaneous
  Country: US (occurrence: US)
  Receive Date: 20140423
  Receipt Date: 20140423
  Transmission Date: 20141212
  Serious: Yes (Other)
  Sender: FDA-Public Use
  Company Number: US-GILEAD-2014-0099978

PATIENT
  Sex: Female

DRUGS (1)
  1. LETAIRIS [Suspect]
     Indication: PRODUCT USED FOR UNKNOWN INDICATION
     Dosage: 5 MG, QD
     Route: 048
     Dates: start: 20130808

REACTIONS (6)
  - Myocardial infarction [Unknown]
  - Unevaluable event [Unknown]
  - Malaise [Unknown]
  - Chest pain [Unknown]
  - Fluid retention [Unknown]
  - Dyspnoea [Unknown]
